FAERS Safety Report 5851963-9 (Version None)
Quarter: 2008Q3

REPORT INFORMATION
  Report Type: 
  Country: None (occurrence: None)
  Receive Date: 20080820
  Receipt Date: 20080811
  Transmission Date: 20090109
  Serious: Yes (Hospitalization)
  Sender: FDA-Public Use
  Company Number: GB-PFIZER INC-2008063871

PATIENT
  Age: 55 Year
  Sex: Male

DRUGS (6)
  1. INSULIN HUMAN [Suspect]
  2. DICLOFENAC [Suspect]
  3. DIAZEPAM [Suspect]
  4. LANSOPRAZOLE [Suspect]
  5. RAMIPRIL [Suspect]
  6. ROSUVASTATIN [Suspect]

REACTIONS (1)
  - NO ADVERSE EVENT [None]
